FAERS Safety Report 6424540-9 (Version None)
Quarter: 2009Q4

REPORT INFORMATION
  Report Type: 
  Country: None (occurrence: None)
  Receive Date: 20091103
  Receipt Date: 20091029
  Transmission Date: 20100525
  Serious: Yes (Death, Hospitalization)
  Sender: FDA-Public Use
  Company Number: US-BAYER-200935249NA

PATIENT
  Age: 71 Year
  Sex: Male
  Weight: 67 kg

DRUGS (25)
  1. SORAFENIB [Suspect]
     Indication: ADENOCARCINOMA PANCREAS
     Route: 048
     Dates: start: 20090720, end: 20090727
  2. SORAFENIB [Suspect]
     Dosage: TOTAL DAILY DOSE: 400 MG  UNIT DOSE: 200 MG
     Route: 048
     Dates: start: 20090729, end: 20090930
  3. GEMCITABINE [Suspect]
     Indication: ADENOCARCINOMA PANCREAS
     Dosage: TOTAL DAILY DOSE: 1134 MG
     Route: 042
     Dates: start: 20090720, end: 20090914
  4. OXYCONTIN [Concomitant]
     Indication: PAIN IN EXTREMITY
  5. PLAVIX [Concomitant]
     Dosage: TOTAL DAILY DOSE: 75 MG
  6. CRESTOR [Concomitant]
     Dosage: TOTAL DAILY DOSE: 10 MG
  7. ASPIRIN [Concomitant]
     Dosage: TOTAL DAILY DOSE: 81 MG
  8. TOPROL-XL [Concomitant]
     Dosage: TOTAL DAILY DOSE: 50 MG
  9. LOTREL [Concomitant]
  10. NORCO [Concomitant]
     Indication: PAIN
     Dosage: 5/325; 1-2 Q 4 H
  11. PREVACID [Concomitant]
     Dosage: TOTAL DAILY DOSE: 30 MG
  12. ADVAIR DISKUS 100/50 [Concomitant]
     Dosage: 100/50
     Route: 055
  13. OXYCODONE [Concomitant]
  14. ATIVAN [Concomitant]
     Dosage: TOTAL DAILY DOSE: 3 MG
  15. MEGACE [Concomitant]
     Dosage: TOTAL DAILY DOSE: 25 MG
  16. CARAFATE [Concomitant]
     Dosage: TOTAL DAILY DOSE: 4 G
  17. LEXAPRO [Concomitant]
     Dosage: TOTAL DAILY DOSE: 10 MG
  18. DEXAMETHASONE [Concomitant]
     Dosage: TOTAL DAILY DOSE: 0.5 MG
  19. SENNA [Concomitant]
     Dosage: TOTAL DAILY DOSE: 1 DF
  20. COLACE [Concomitant]
     Dosage: TOTAL DAILY DOSE: 100 MG
  21. LASIX [Concomitant]
     Dosage: TOTAL DAILY DOSE: 40 MG
     Route: 042
  22. XOPENEX [Concomitant]
     Dosage: Q 6 H
  23. PEPCID [Concomitant]
     Dosage: TOTAL DAILY DOSE: 40 MG
  24. QUESTRAN [Concomitant]
     Dosage: TOTAL DAILY DOSE: 3 G
  25. JEVITY [Concomitant]

REACTIONS (9)
  - ABDOMINAL PAIN [None]
  - ACUTE RESPIRATORY FAILURE [None]
  - CONFUSIONAL STATE [None]
  - HYPONATRAEMIA [None]
  - HYPOTENSION [None]
  - MULTI-ORGAN FAILURE [None]
  - PSEUDOMONAL SEPSIS [None]
  - PYREXIA [None]
  - SEDATION [None]
